FAERS Safety Report 20532381 (Version 1)
Quarter: 2022Q1

REPORT INFORMATION
  Report Type: Report from Study
  Country: US (occurrence: US)
  Receive Date: 20220301
  Receipt Date: 20220301
  Transmission Date: 20220423
  Serious: Yes (Other)
  Sender: FDA-Public Use
  Company Number: US-NOVARTISPH-NVSC2022US041768

PATIENT
  Sex: Female

DRUGS (1)
  1. ENTRESTO [Suspect]
     Active Substance: SACUBITRIL\VALSARTAN
     Indication: Product used for unknown indication
     Dosage: 2 DF, BID (2 PILLS TWICE A DAY), 24.26 MG
     Route: 048
     Dates: start: 2021, end: 20220221

REACTIONS (2)
  - Feeling abnormal [Unknown]
  - Dizziness [Unknown]
